FAERS Safety Report 8538699-0 (Version None)
Quarter: 2012Q3

REPORT INFORMATION
  Report Type: 
  Country: None (occurrence: None)
  Receive Date: 20120726
  Receipt Date: 20120716
  Transmission Date: 20120928
  Serious: Yes (Other)
  Sender: FDA-Public Use
  Company Number: US-RB-042449-12

PATIENT
  Age: 84 Year
  Sex: Female

DRUGS (2)
  1. MUCINEX [Suspect]
     Route: 048
     Dates: start: 20120709
  2. MUCINEX [Suspect]
     Indication: RESPIRATORY TRACT CONGESTION
     Route: 048
     Dates: start: 20120710

REACTIONS (6)
  - DRUG INEFFECTIVE [None]
  - NERVOUSNESS [None]
  - DISORIENTATION [None]
  - BLOOD PRESSURE INCREASED [None]
  - ANXIETY [None]
  - FEELING ABNORMAL [None]
